FAERS Safety Report 8508261-4 (Version None)
Quarter: 2012Q2

REPORT INFORMATION
  Report Type: 
  Country: None (occurrence: None)
  Receive Date: 20120405
  Receipt Date: 20080707
  Transmission Date: 20120825
  Serious: Yes (Disabling, Other)
  Sender: FDA-Public Use
  Company Number: PHEH2008US04438

PATIENT
  Sex: Female

DRUGS (9)
  1. LASIX [Concomitant]
  2. LISINOPRIL [Concomitant]
  3. RECLAST [Suspect]
     Indication: OSTEOPOROSIS
     Dosage: , INFUSION
     Dates: start: 20080325
  4. ATENOLOL [Concomitant]
  5. CALCIUM CARBONATE [Concomitant]
  6. ASCORBIC ACID [Concomitant]
  7. TIMOPTIC [Concomitant]
  8. MULTIPLE VITAMINS (ASCORBIC ACID, ERGOCALCIFEROL, FOLIC ACID, RETINOL, [Concomitant]
  9. VITAMIN E [Concomitant]

REACTIONS (7)
  - ARTHRALGIA [None]
  - VENOUS INSUFFICIENCY [None]
  - HEADACHE [None]
  - OEDEMA [None]
  - PAIN IN EXTREMITY [None]
  - OEDEMA PERIPHERAL [None]
  - ERYTHEMA [None]
